FAERS Safety Report 12267296 (Version 2)
Quarter: 2016Q2

REPORT INFORMATION
  Report Type: Report from Study
  Country: US (occurrence: US)
  Receive Date: 20160414
  Receipt Date: 20160626
  Transmission Date: 20160815
  Serious: Yes (Hospitalization, Other)
  Sender: FDA-Public Use
  Company Number: PHHY2016US047585

PATIENT
  Age: 18 Year
  Sex: Female
  Weight: 82 kg

DRUGS (2)
  1. TOBI PODHALER [Suspect]
     Active Substance: TOBRAMYCIN
     Indication: PSEUDOMONAS INFECTION
     Dosage: 300 MG, BID (28 DAYS ON AND 28 DAYS OFF CYCLE)
     Route: 055
  2. TOBI PODHALER [Suspect]
     Active Substance: TOBRAMYCIN
     Indication: CYSTIC FIBROSIS

REACTIONS (24)
  - Nausea [Unknown]
  - Dyspnoea at rest [Unknown]
  - Gastrooesophageal reflux disease [Unknown]
  - Pancreatic insufficiency [Unknown]
  - Bronchopulmonary aspergillosis allergic [Unknown]
  - Cystic fibrosis related diabetes [Unknown]
  - Obstructive airways disorder [Unknown]
  - Chronic sinusitis [Unknown]
  - Anxiety [Unknown]
  - Influenza [Recovered/Resolved]
  - Bronchiectasis [Unknown]
  - Infective pulmonary exacerbation of cystic fibrosis [Recovering/Resolving]
  - Heart rate increased [Unknown]
  - Weight decreased [Unknown]
  - Rales [Unknown]
  - Pyrexia [Unknown]
  - Cough [Unknown]
  - Hyperhidrosis [Unknown]
  - Malnutrition [Unknown]
  - Vomiting [Unknown]
  - Dyspnoea [Unknown]
  - Hypoxia [Unknown]
  - Decreased appetite [Unknown]
  - Upper-airway cough syndrome [Unknown]

NARRATIVE: CASE EVENT DATE: 20160305
